FAERS Safety Report 21604762 (Version 1)
Quarter: 2022Q4

REPORT INFORMATION
  Report Type: Report from Study
  Country: IT (occurrence: IT)
  Receive Date: 20221116
  Receipt Date: 20221116
  Transmission Date: 20230113
  Serious: Yes (Hospitalization, Other)
  Sender: FDA-Public Use
  Company Number: None

PATIENT
  Age: 4 Year
  Sex: Male
  Weight: 19 kg

DRUGS (7)
  1. METHOTREXATE (METHOTREXATE SODIUM) [Suspect]
     Active Substance: METHOTREXATE SODIUM
     Indication: Acute lymphocytic leukaemia
     Dosage: 12 MG ON 9/14 AND 9/21/22, DURATION : 7 DAYS
     Route: 065
     Dates: start: 20220914, end: 20220921
  2. VINCRISTINE [Suspect]
     Active Substance: VINCRISTINE
     Indication: Acute lymphocytic leukaemia
     Dosage: 0.95 MG ON 08/08, 16/08, 22/08 AND 29/0872022, DURATION : 13 DAYS
     Route: 065
     Dates: start: 20220808, end: 20220821
  3. ONCASPAR [Suspect]
     Active Substance: PEGASPARGASE
     Indication: Acute lymphocytic leukaemia
     Dosage: 1640 MG
     Route: 065
     Dates: start: 20220808, end: 20220808
  4. THIOGUANINE ANHYDROUS [Suspect]
     Active Substance: THIOGUANINE ANHYDROUS
     Indication: Acute lymphocytic leukaemia
     Dosage: 37 MILLIGRAM DAILY; DURATION : 14 DAYS
     Route: 065
     Dates: start: 20220912, end: 20220926
  5. CYTARABINE [Suspect]
     Active Substance: CYTARABINE
     Indication: Acute lymphocytic leukaemia
     Dosage: 49 MG / DAY FROM DAY 09/14 TO 09/17/22?49 MG / DAY FROM DAY 09/21 TO 09/24/22?DURATION : 10 DAYS
     Route: 065
     Dates: start: 20220914, end: 20220924
  6. CYCLOPHOSPHAMIDE [Suspect]
     Active Substance: CYCLOPHOSPHAMIDE
     Indication: Acute lymphocytic leukaemia
     Dosage: 650 MG
     Route: 065
     Dates: start: 20220912, end: 20220912
  7. DECADRON [Concomitant]
     Active Substance: DEXAMETHASONE
     Indication: Product used for unknown indication
     Dosage: 6 MG/DAY FROM DAY 01/08 TO DAY 20/08/22?3 MG/DAY FROM DAY 21/08 TO DAY 23/08/22?1.5 MG/DAY FROM DAY
     Route: 065
     Dates: start: 20220801, end: 20220829

REACTIONS (5)
  - Febrile neutropenia [Recovered/Resolved]
  - Pancytopenia [Not Recovered/Not Resolved]
  - Alanine aminotransferase increased [Recovered/Resolved]
  - Anaemia [Not Recovered/Not Resolved]
  - Constipation [Recovered/Resolved]

NARRATIVE: CASE EVENT DATE: 20220822
